FAERS Safety Report 21472857 (Version 3)
Quarter: 2022Q4

REPORT INFORMATION
  Report Type: Spontaneous
  Country: SE (occurrence: None)
  Receive Date: 20221018
  Receipt Date: 20221223
  Transmission Date: 20230113
  Serious: Yes (Other)
  Sender: FDA-Public Use
  Company Number: SE-ROCHE-3201588

PATIENT
  Sex: Female

DRUGS (3)
  1. TOCILIZUMAB [Suspect]
     Active Substance: TOCILIZUMAB
     Indication: Giant cell arteritis
     Route: 058
  2. METHOTREXATE [Concomitant]
     Active Substance: METHOTREXATE
  3. GABAPENTIN [Concomitant]
     Active Substance: GABAPENTIN

REACTIONS (9)
  - Rash [Unknown]
  - Purpura [Unknown]
  - Swelling [Unknown]
  - Haemorrhage [Unknown]
  - Blister [Unknown]
  - Pyoderma gangrenosum [Unknown]
  - Cryoglobulinaemia [Unknown]
  - Vasculitis [Unknown]
  - Microembolism [Unknown]
